FAERS Safety Report 12102991 (Version 2)
Quarter: 2016Q1

REPORT INFORMATION
  Report Type: Spontaneous
  Country: CH (occurrence: CH)
  Receive Date: 20160222
  Receipt Date: 20160303
  Transmission Date: 20160526
  Serious: Yes (Hospitalization, Other)
  Sender: FDA-Public Use
  Company Number: CH-TAKEDA-2016TUS002689

PATIENT
  Age: 52 Year
  Sex: Male

DRUGS (4)
  1. SPIRICORT [Concomitant]
     Active Substance: PREDNISOLONE
     Dosage: 5 MG, BID
  2. NEBILET [Concomitant]
     Active Substance: NEBIVOLOL
     Dosage: 5 MG, UNK
     Dates: start: 20160219
  3. ENTYVIO [Suspect]
     Active Substance: VEDOLIZUMAB
     Indication: COLITIS ULCERATIVE
     Dosage: 300 MG, UNK
     Route: 042
     Dates: start: 201505
  4. NEBILET [Concomitant]
     Active Substance: NEBIVOLOL
     Dosage: 5 UNK, UNK
     Dates: end: 20160218

REACTIONS (1)
  - Pulmonary embolism [Recovering/Resolving]

NARRATIVE: CASE EVENT DATE: 20160209
